FAERS Safety Report 13625046 (Version 15)
Quarter: 2020Q2

REPORT INFORMATION
  Report Type: Spontaneous
  Country: CA (occurrence: CA)
  Receive Date: 20170608
  Receipt Date: 20200512
  Transmission Date: 20200713
  Serious: Yes (Other)
  Sender: FDA-Public Use
  Company Number: CA-HORIZON-VIM-0072-2017

PATIENT
  Age: 44 Year
  Sex: Female
  Weight: 63 kg

DRUGS (51)
  1. HUMIRA [Suspect]
     Active Substance: ADALIMUMAB
     Indication: DRUG THERAPY
     Dosage: 40 MG UNKNOWN, SOLUTION FOR INJECTION
     Route: 058
     Dates: start: 201008, end: 201312
  2. LYRICA [Suspect]
     Active Substance: PREGABALIN
     Indication: RHEUMATOID ARTHRITIS
     Dosage: 300 MG QD, 150 MG BID
     Route: 048
  3. MELOXICAM. [Suspect]
     Active Substance: MELOXICAM
     Indication: PRODUCT USE IN UNAPPROVED INDICATION
     Dosage: 150 MG DAILY
  4. PREDNISONE. [Suspect]
     Active Substance: PREDNISONE
     Indication: RHEUMATOID ARTHRITIS
     Dosage: 15 MG QD
  5. SEPTRA [Suspect]
     Active Substance: SULFAMETHOXAZOLE\TRIMETHOPRIM
     Indication: PRODUCT USE IN UNAPPROVED INDICATION
     Dates: start: 20071221, end: 20180211
  6. SULFASALAZINE. [Suspect]
     Active Substance: SULFASALAZINE
     Indication: RHEUMATOID ARTHRITIS
     Route: 048
  7. TOFACITINIB [Suspect]
     Active Substance: TOFACITINIB
     Indication: RHEUMATOID ARTHRITIS
     Dosage: 5 MG BID AND 10 MG DAILY
     Route: 048
     Dates: start: 20140927
  8. FOLIC ACID. [Concomitant]
     Active Substance: FOLIC ACID
  9. CANNABIS SATIVA [Concomitant]
     Active Substance: CANNABIS SATIVA FLOWERING TOP
  10. PREGABALIN. [Suspect]
     Active Substance: PREGABALIN
     Indication: RHEUMATOID ARTHRITIS
     Route: 048
  11. NAPROXEN. [Suspect]
     Active Substance: NAPROXEN
     Indication: PRODUCT USE IN UNAPPROVED INDICATION
     Dosage: 500 MG BID, 250 MG BID, 1000 MG BID
     Route: 048
     Dates: start: 2011
  12. IMURAN [Suspect]
     Active Substance: AZATHIOPRINE
     Indication: PRODUCT USE IN UNAPPROVED INDICATION
     Dosage: 150 MG
  13. METHOTREXATE. [Suspect]
     Active Substance: METHOTREXATE
     Indication: RHEUMATOID ARTHRITIS
     Route: 058
  14. APO-NAPROXEN [Suspect]
     Active Substance: NAPROXEN
     Indication: PRODUCT USE IN UNAPPROVED INDICATION
     Dosage: 500 MG BID
     Route: 048
  15. TOFACITINIB [Suspect]
     Active Substance: TOFACITINIB
     Indication: RHEUMATOID ARTHRITIS
     Dosage: 5 MG TWO TIMES DAILY
     Route: 048
     Dates: end: 20140927
  16. AMOXICILLIN. [Suspect]
     Active Substance: AMOXICILLIN
     Indication: PRODUCT USED FOR UNKNOWN INDICATION
     Route: 065
  17. HYDROXYCHLOROQUINE PHOSPHATE [Suspect]
     Active Substance: HYDROXYCHLOROQUINE DIPHOSPHATE
     Indication: PRODUCT USED FOR UNKNOWN INDICATION
  18. VIMOVO [Suspect]
     Active Substance: ESOMEPRAZOLE MAGNESIUM\NAPROXEN
     Indication: PRODUCT USE IN UNAPPROVED INDICATION
     Dosage: UNKNOWN DOSE
     Route: 048
  19. METHOTREXATE. [Suspect]
     Active Substance: METHOTREXATE
     Indication: RHEUMATOID ARTHRITIS
     Dosage: 20 MG WEEKLY, RESTARTED 2008
     Route: 048
     Dates: start: 2007, end: 2008
  20. ENBREL [Suspect]
     Active Substance: ETANERCEPT
     Indication: RHEUMATOID ARTHRITIS
     Dosage: 50 MG ONCE WEEKLY
     Route: 058
     Dates: start: 200812, end: 201007
  21. PANTOLOC [Suspect]
     Active Substance: PANTOPRAZOLE SODIUM
     Indication: PRODUCT USE IN UNAPPROVED INDICATION
     Dosage: DAILY
     Route: 048
  22. DEPO-MEDROL [Suspect]
     Active Substance: METHYLPREDNISOLONE ACETATE
     Indication: RHEUMATOID ARTHRITIS
     Route: 014
  23. APO-RANITIDINE [Suspect]
     Active Substance: RANITIDINE
     Indication: PRODUCT USE IN UNAPPROVED INDICATION
     Dosage: 150 MG BID
     Route: 048
  24. BACTRIM [Suspect]
     Active Substance: SULFAMETHOXAZOLE\TRIMETHOPRIM
     Indication: PRODUCT USE IN UNAPPROVED INDICATION
  25. CODEINE [Concomitant]
     Active Substance: CODEINE
     Dosage: QD
  26. CIMZIA [Concomitant]
     Active Substance: CERTOLIZUMAB PEGOL
  27. ORENCIA [Concomitant]
     Active Substance: ABATACEPT
     Route: 065
  28. AZATHIOPRINE. [Suspect]
     Active Substance: AZATHIOPRINE
     Indication: PRODUCT USED FOR UNKNOWN INDICATION
  29. ADALIMUMAB [Suspect]
     Active Substance: ADALIMUMAB
     Indication: PRODUCT USED FOR UNKNOWN INDICATION
  30. ALENDRONIC ACID [Suspect]
     Active Substance: ALENDRONIC ACID
     Indication: PRODUCT USE IN UNAPPROVED INDICATION
     Route: 048
  31. RANITIDINE. [Suspect]
     Active Substance: RANITIDINE
     Indication: PRODUCT USE IN UNAPPROVED INDICATION
     Dosage: 300 MG QD
     Route: 048
     Dates: start: 2012
  32. SULFASALAZINE. [Suspect]
     Active Substance: SULFASALAZINE
     Indication: RHEUMATOID ARTHRITIS
     Dosage: 1 G, DAILY
     Route: 048
     Dates: start: 20071221, end: 20080211
  33. APO-AMITRIPTYLINE [Suspect]
     Active Substance: AMITRIPTYLINE HYDROCHLORIDE
     Indication: PRODUCT USE IN UNAPPROVED INDICATION
     Dosage: 75 MG QD
     Route: 048
  34. ACETAMINOPHEN W/OXYCODONE HYDROCHLORIDE [Suspect]
     Active Substance: ACETAMINOPHEN\OXYCODONE HYDROCHLORIDE
     Indication: PRODUCT USE IN UNAPPROVED INDICATION
  35. ALENDRONATE SODIUM. [Suspect]
     Active Substance: ALENDRONATE SODIUM
     Indication: PRODUCT USED FOR UNKNOWN INDICATION
     Route: 065
  36. APO-MELOXICAM [Suspect]
     Active Substance: MELOXICAM
     Indication: PRODUCT USE IN UNAPPROVED INDICATION
  37. RANITIDINE. [Suspect]
     Active Substance: RANITIDINE
     Indication: PRODUCT USED FOR UNKNOWN INDICATION
     Route: 048
  38. CELEBREX [Concomitant]
     Active Substance: CELECOXIB
     Indication: PRODUCT USED FOR UNKNOWN INDICATION
  39. DEXILANT [Concomitant]
     Active Substance: DEXLANSOPRAZOLE
  40. MOBICOX [Suspect]
     Active Substance: MELOXICAM
     Indication: PRODUCT USED FOR UNKNOWN INDICATION
  41. ELAVIL [Suspect]
     Active Substance: AMITRIPTYLINE HYDROCHLORIDE
     Indication: PRODUCT USED FOR UNKNOWN INDICATION
  42. RATIO-OXYCOCET [Suspect]
     Active Substance: ACETAMINOPHEN\OXYCODONE HYDROCHLORIDE
     Indication: PRODUCT USE IN UNAPPROVED INDICATION
  43. APO-PREDNISONE [Suspect]
     Active Substance: PREDNISONE
     Indication: PRODUCT USE IN UNAPPROVED INDICATION
     Dosage: 15 MG DAILY
  44. ESOMEPRAZOLE MAGNESIUM. [Suspect]
     Active Substance: ESOMEPRAZOLE MAGNESIUM
     Indication: PRODUCT USE IN UNAPPROVED INDICATION
     Route: 048
  45. CELEBREX [Concomitant]
     Active Substance: CELECOXIB
     Indication: PRODUCT USED FOR UNKNOWN INDICATION
  46. AMITRIPTYLINE HYDROCHLORIDE. [Suspect]
     Active Substance: AMITRIPTYLINE HYDROCHLORIDE
     Indication: PRODUCT USE IN UNAPPROVED INDICATION
     Dosage: 75 MG DAILY
     Route: 048
     Dates: start: 2011
  47. PLAQUENIL [Concomitant]
     Active Substance: HYDROXYCHLOROQUINE SULFATE
  48. TEVA-OXYCOCET [Suspect]
     Active Substance: ACETAMINOPHEN\OXYCODONE HYDROCHLORIDE
     Indication: PRODUCT USE IN UNAPPROVED INDICATION
  49. APO-ALENDRONATE [Suspect]
     Active Substance: ALENDRONATE SODIUM
     Indication: PRODUCT USED FOR UNKNOWN INDICATION
  50. ELTROXIN [Concomitant]
     Active Substance: LEVOTHYROXINE
  51. PANTOPRAZOLE [Suspect]
     Active Substance: PANTOPRAZOLE
     Indication: PRODUCT USED FOR UNKNOWN INDICATION

REACTIONS (55)
  - Bursitis [Unknown]
  - Fibromyalgia [Unknown]
  - Impaired work ability [Unknown]
  - Dry mouth [Unknown]
  - Rheumatoid arthritis [Unknown]
  - Synovial cyst [Unknown]
  - Atelectasis [Unknown]
  - Crepitations [Unknown]
  - Musculoskeletal stiffness [Unknown]
  - Joint swelling [Unknown]
  - Eye pain [Unknown]
  - Lung disorder [Unknown]
  - Nodule [Unknown]
  - Scleritis [Unknown]
  - Red blood cell count decreased [Unknown]
  - Dyspnoea [Unknown]
  - Dry eye [Unknown]
  - Cushingoid [Unknown]
  - Photophobia [Unknown]
  - Tenderness [Unknown]
  - Tenosynovitis stenosans [Unknown]
  - Ulcer [Unknown]
  - Pneumonia [Unknown]
  - Pruritus [Unknown]
  - Haemoglobin decreased [Unknown]
  - Flank pain [Unknown]
  - Wheezing [Unknown]
  - Conjunctivitis [Unknown]
  - Nausea [Unknown]
  - Rash [Unknown]
  - Arthralgia [Unknown]
  - Pain in extremity [Unknown]
  - Neoplasm malignant [Unknown]
  - Feeling jittery [Unknown]
  - Pleuritic pain [Unknown]
  - Antinuclear antibody positive [Unknown]
  - Erythema [Unknown]
  - Drug ineffective [Unknown]
  - Rheumatoid nodule [Unknown]
  - Joint effusion [Unknown]
  - Visual impairment [Unknown]
  - Synovial fluid analysis [Unknown]
  - Infection [Unknown]
  - Musculoskeletal pain [Unknown]
  - Abdominal pain [Unknown]
  - Peripheral swelling [Unknown]
  - Ocular hyperaemia [Unknown]
  - Thrombosis [Unknown]
  - Pain [Unknown]
  - Interstitial lung disease [Unknown]
  - Malaise [Unknown]
  - Therapeutic product effect decreased [Unknown]
  - Contraindicated product administered [Unknown]
  - Eye irritation [Unknown]
  - Swelling face [Unknown]

NARRATIVE: CASE EVENT DATE: 2008
